FAERS Safety Report 4851196-9 (Version None)
Quarter: 2005Q4

REPORT INFORMATION
  Report Type: 
  Country: None (occurrence: None)
  Receive Date: 20051208
  Receipt Date: 20051123
  Transmission Date: 20060501
  Serious: Yes (Other)
  Sender: FDA-Public Use
  Company Number: 2005SP004154

PATIENT
  Age: 55 Year
  Sex: Male

DRUGS (1)
  1. LUNESTA [Suspect]
     Dosage: 1 MG; 1X; ORAL
     Route: 048
     Dates: start: 20051122, end: 20051122

REACTIONS (7)
  - CHEST PAIN [None]
  - DRY MOUTH [None]
  - DYSPEPSIA [None]
  - INSOMNIA [None]
  - MYOCARDIAL INFARCTION [None]
  - THERMAL BURN [None]
  - VOMITING [None]
